FAERS Safety Report 9142875 (Version 3)
Quarter: 2014Q2

REPORT INFORMATION
  Report Type: Spontaneous
  Country: FR (occurrence: FR)
  Receive Date: 20130306
  Receipt Date: 20140515
  Transmission Date: 20141212
  Serious: Yes (Other)
  Sender: FDA-Public Use
  Company Number: FR-PFIZER INC-2013077360

PATIENT
  Age: 74 Year
  Sex: Male

DRUGS (10)
  1. SOLU-MEDROL [Suspect]
     Indication: GLOMERULONEPHRITIS
     Dosage: 3 BOLUSES
     Dates: start: 20130118
  2. AMLODIPINE [Concomitant]
     Dosage: UNK
  3. ATORVASTATIN [Concomitant]
     Dosage: UNK
  4. BISOPROLOL [Concomitant]
     Dosage: UNK
  5. KARDEGIC [Concomitant]
     Dosage: UNK
  6. PLAVIX [Concomitant]
     Dosage: UNK
  7. DUOPLAVIN [Concomitant]
     Dosage: UNK
  8. EZETROL [Concomitant]
     Dosage: UNK
  9. ESOMEPRAZOLE [Concomitant]
     Dosage: UNK
  10. DISCOTRINE [Concomitant]
     Dosage: UNK

REACTIONS (1)
  - Diabetes mellitus inadequate control [Recovered/Resolved with Sequelae]
